FAERS Safety Report 4372594-6 (Version None)
Quarter: 2004Q2

REPORT INFORMATION
  Report Type: 
  Country: None (occurrence: None)
  Receive Date: 20040526
  Receipt Date: 20040514
  Transmission Date: 20050107
  Serious: Yes (Hospitalization)
  Sender: FDA-Public Use
  Company Number: 2004PK00882

PATIENT
  Age: 78 Year
  Sex: Female
  Weight: 67.5 kg

DRUGS (6)
  1. BELOC ZOK [Suspect]
     Indication: HYPERTENSION
     Dosage: 47.5 MG QD PO
     Route: 048
     Dates: start: 20000101
  2. ACTRAPHANE HM [Suspect]
     Indication: DIABETES MELLITUS
     Dosage: 56 IU DAILY SQ
     Dates: start: 20030101
  3. CYNT [Concomitant]
  4. DIOVAN [Concomitant]
  5. DISALUNIL [Concomitant]
  6. EBRANTIL [Concomitant]

REACTIONS (2)
  - DRUG INTERACTION [None]
  - SHOCK HYPOGLYCAEMIC [None]
